FAERS Safety Report 8188168 (Version 5)
Quarter: 2013Q1

REPORT INFORMATION
  Report Type: Spontaneous
  Country: US (occurrence: US)
  Receive Date: 20111018
  Receipt Date: 20130304
  Transmission Date: 20140127
  Serious: Yes (Hospitalization, Other)
  Sender: FDA-Public Use
  Company Number: US-ASTRAZENECA-2010SE16995

PATIENT
  Age: 48 Year
  Sex: Female

DRUGS (7)
  1. NEXIUM [Suspect]
     Route: 048
  2. NEXIUM [Suspect]
     Route: 048
  3. SYMBICORT PMDI [Suspect]
     Dosage: 160 /4.5 MCG, DAILY
     Route: 055
  4. SEROQUEL XR [Suspect]
     Indication: MOOD SWINGS
     Route: 048
  5. SEROQUEL XR [Suspect]
     Indication: MOOD SWINGS
     Route: 048
  6. XANAX [Suspect]
     Route: 065
  7. PREVACID OTC [Concomitant]

REACTIONS (16)
  - Weight decreased [Unknown]
  - Haematemesis [Unknown]
  - Gastrooesophageal reflux disease [Unknown]
  - Malaise [Unknown]
  - Immunodeficiency common variable [Unknown]
  - Amnesia [Unknown]
  - Nausea [Unknown]
  - Aphagia [Unknown]
  - Abdominal discomfort [Unknown]
  - Crying [Unknown]
  - Vomiting [Unknown]
  - Insomnia [Unknown]
  - Bronchitis [Unknown]
  - Road traffic accident [Unknown]
  - Pain [Unknown]
  - Drug dose omission [Unknown]
